FAERS Safety Report 19321022 (Version 1)
Quarter: 2021Q2

REPORT INFORMATION
  Report Type: Spontaneous
  Country: US (occurrence: US)
  Receive Date: 20210528
  Receipt Date: 20210528
  Transmission Date: 20210717
  Serious: Yes (Other)
  Sender: FDA-Public Use
  Company Number: US-PURDUE-USA-2020-0228794

PATIENT
  Sex: Male

DRUGS (10)
  1. HYDROCODONE BITARTRATE AND ACETAMINOPHEN [Suspect]
     Active Substance: ACETAMINOPHEN\HYDROCODONE BITARTRATE
     Indication: NEPHROLITHIASIS
     Dosage: UNK
     Route: 048
     Dates: start: 2013
  2. OXYCODONE HYDROCHLORIDE (SIMILAR TO NDA 22?272) [Suspect]
     Active Substance: OXYCODONE HYDROCHLORIDE
     Indication: NEPHROLITHIASIS
     Dosage: UNK
     Route: 065
     Dates: start: 2013
  3. HEROIN [Suspect]
     Active Substance: DIAMORPHINE
     Indication: NEPHROLITHIASIS
     Dosage: UNK
     Route: 065
     Dates: start: 2013
  4. HYDROCODONE BITARTRATE (SIMILAR TO NDA 206627) [Suspect]
     Active Substance: HYDROCODONE BITARTRATE
     Indication: NEPHROLITHIASIS
     Dosage: UNK
     Route: 065
     Dates: start: 2013
  5. NORCO [Suspect]
     Active Substance: ACETAMINOPHEN\HYDROCODONE BITARTRATE
     Indication: NEPHROLITHIASIS
     Dosage: UNK
     Route: 065
     Dates: start: 2013
  6. OXYCODONE HCL CR TABLETS (SIMILAR TO NDA 22?272) [Suspect]
     Active Substance: OXYCODONE HYDROCHLORIDE
     Indication: NEPHROLITHIASIS
     Dosage: UNK
     Route: 048
     Dates: start: 2013
  7. MORPHINE SULFATE EXTENDED?RELEASE TABLETS (RHODES 74?769, 74?862) [Suspect]
     Active Substance: MORPHINE SULFATE
     Indication: NEPHROLITHIASIS
     Dosage: UNK
     Route: 048
     Dates: start: 2013
  8. PERCOCET [Suspect]
     Active Substance: ACETAMINOPHEN\OXYCODONE HYDROCHLORIDE
     Indication: NEPHROLITHIASIS
     Dosage: UNK
     Route: 065
     Dates: start: 2013
  9. OXYCONTIN [Suspect]
     Active Substance: OXYCODONE HYDROCHLORIDE
     Indication: NEPHROLITHIASIS
     Dosage: UNK
     Route: 048
     Dates: start: 2013
  10. OXYCODONE/ ACETAMINOPHEN TABLETS [Suspect]
     Active Substance: ACETAMINOPHEN\OXYCODONE HYDROCHLORIDE
     Indication: NEPHROLITHIASIS
     Dosage: UNK
     Route: 048
     Dates: start: 2013

REACTIONS (4)
  - Depression [Unknown]
  - Drug abuse [Unknown]
  - Mental disorder [Unknown]
  - Drug dependence [Unknown]
